FAERS Safety Report 11928425 (Version 2)
Quarter: 2017Q3

REPORT INFORMATION
  Report Type: Spontaneous
  Country: IT (occurrence: IT)
  Receive Date: 20160119
  Receipt Date: 20170925
  Transmission Date: 20171127
  Serious: Yes (Life-Threatening, Other)
  Sender: FDA-Public Use
  Company Number: IT-PFIZER INC-2014162018

PATIENT
  Age: 66 Year
  Sex: Female

DRUGS (9)
  1. PROPOFOL FRESENIUS KABI [Suspect]
     Active Substance: PROPOFOL
     Indication: GENERAL ANAESTHESIA
     Dosage: 200 MG, SINGLE
     Route: 042
     Dates: start: 20140530, end: 20140530
  2. FENTANEST [Suspect]
     Active Substance: FENTANYL CITRATE
     Indication: GENERAL ANAESTHESIA
     Dosage: 200 UG, SINGLE
     Route: 042
     Dates: start: 20140530, end: 20140530
  3. UNASYN [Suspect]
     Active Substance: AMPICILLIN SODIUM\SULBACTAM SODIUM
     Dosage: 3 G, SINGLE
     Route: 042
     Dates: start: 20140530, end: 20140530
  4. ROPIVACAIN FRESENIUS KABI [Suspect]
     Active Substance: ROPIVACAINE
     Indication: EPIDURAL ANALGESIA
     Dosage: UNK
  5. MIDAZOLAM [Suspect]
     Active Substance: MIDAZOLAM HYDROCHLORIDE
     Indication: GENERAL ANAESTHESIA
     Dosage: 2 MG, SINGLE
     Route: 042
     Dates: start: 20140530, end: 20140530
  6. RANITIDINA ANGENERICO [Suspect]
     Active Substance: RANITIDINE HYDROCHLORIDE
     Dosage: 50 MG, SINGLE
     Route: 042
     Dates: start: 20140530, end: 20140530
  7. ROCURONIUM BROMIDE. [Suspect]
     Active Substance: ROCURONIUM BROMIDE
     Indication: GENERAL ANAESTHESIA
     Dosage: 30 MG, SINGLE
     Route: 042
     Dates: start: 20140530, end: 20140530
  8. DISUFEN [Suspect]
     Active Substance: SUFENTANIL CITRATE
     Indication: EPIDURAL ANALGESIA
     Dosage: UNK
     Dates: start: 20140530, end: 20140530
  9. SUPRANE [Suspect]
     Active Substance: DESFLURANE
     Dosage: UNK

REACTIONS (1)
  - Angioedema [Recovered/Resolved]

NARRATIVE: CASE EVENT DATE: 20140530
